FAERS Safety Report 23201779 (Version 2)
Quarter: 2023Q4

REPORT INFORMATION
  Report Type: Report from Study
  Country: US (occurrence: US)
  Receive Date: 20231120
  Receipt Date: 20231215
  Transmission Date: 20240109
  Serious: No
  Sender: FDA-Public Use
  Company Number: US-BRISTOL-MYERS SQUIBB COMPANY-2023-163952

PATIENT
  Age: 72 Year
  Sex: Male

DRUGS (2)
  1. CAMZYOS [Suspect]
     Active Substance: MAVACAMTEN
     Indication: Hypertrophic cardiomyopathy
     Route: 048
  2. CAMZYOS [Suspect]
     Active Substance: MAVACAMTEN
     Dosage: STRENGTH- 5 MILLIGRAM
     Route: 048

REACTIONS (3)
  - Product dose omission issue [Unknown]
  - Off label use [Unknown]
  - Transvalvular pressure gradient increased [Unknown]
